FAERS Safety Report 12425784 (Version 1)
Quarter: 2016Q2

REPORT INFORMATION
  Report Type: Other
  Country: US (occurrence: US)
  Receive Date: 20160601
  Receipt Date: 20160601
  Transmission Date: 20160815
  Serious: Yes (Other)
  Sender: FDA-Public Use
  Company Number: US-THE MENTHOLATUM COMPANY-1053034

PATIENT
  Age: 50 Year
  Sex: Female

DRUGS (1)
  1. CAMPHOR, EUCALYPTUS OIL, MENTHOL VAPORIZING RUB [Suspect]
     Active Substance: CAMPHOR\EUCALYPTUS OIL\MENTHOL
     Route: 061
     Dates: start: 20160514, end: 20160515

REACTIONS (1)
  - Anosmia [Unknown]

NARRATIVE: CASE EVENT DATE: 20160517
